FAERS Safety Report 7314041-8 (Version None)
Quarter: 2011Q1

REPORT INFORMATION
  Report Type: 
  Country: None (occurrence: None)
  Receive Date: 20110225
  Receipt Date: 20100414
  Transmission Date: 20110831
  Serious: No
  Sender: FDA-Public Use
  Company Number: US-MYLANLABS-2010S1006549

PATIENT
  Age: 15 Year
  Sex: Male
  Weight: 65.77 kg

DRUGS (4)
  1. AMNESTEEM [Suspect]
     Indication: ACNE
     Route: 048
     Dates: start: 20090901, end: 20100201
  2. AMNESTEEM [Suspect]
     Route: 048
     Dates: start: 20100401
  3. AMNESTEEM [Suspect]
     Route: 048
     Dates: start: 20100401
  4. AMNESTEEM [Suspect]
     Route: 048
     Dates: start: 20100201, end: 20100401

REACTIONS (2)
  - ACNE CYSTIC [None]
  - BLOOD TRIGLYCERIDES INCREASED [None]
